FAERS Safety Report 19620987 (Version 1)
Quarter: 2021Q3

REPORT INFORMATION
  Report Type: Spontaneous
  Country: NG (occurrence: NG)
  Receive Date: 20210728
  Receipt Date: 20210728
  Transmission Date: 20211014
  Serious: Yes (Other)
  Sender: FDA-Public Use
  Company Number: NG-LUPIN PHARMACEUTICALS INC.-2021-13531

PATIENT
  Sex: Male
  Weight: 1.4 kg

DRUGS (7)
  1. CEFTRIAXONE. [Suspect]
     Active Substance: CEFTRIAXONE
     Indication: MALARIA
     Dosage: UNK
     Route: 064
     Dates: start: 2019
  2. ARTEMISININ [Suspect]
     Active Substance: DIETARY SUPPLEMENT
     Indication: INVESTIGATION
     Dosage: UNK
     Route: 064
     Dates: start: 2019
  3. PARACETAMOL [Suspect]
     Active Substance: ACETAMINOPHEN
     Indication: INVESTIGATION
     Dosage: UNK
     Route: 064
     Dates: start: 2019
  4. RIBAVIRIN. [Suspect]
     Active Substance: RIBAVIRIN
     Indication: LASSA FEVER
     Dosage: 100 MILLIGRAM/KILOGRAM (LOADING DOSE ON DAY 0 (ADMINISTERED IN 2 DOSES; 2/3RD DOSE WAS ADMINISTERED
     Route: 064
     Dates: start: 2019
  5. LUMEFANTRINE [Suspect]
     Active Substance: LUMEFANTRINE
     Indication: INVESTIGATION
     Dosage: UNK
     Route: 064
     Dates: start: 2019
  6. RIBAVIRIN. [Suspect]
     Active Substance: RIBAVIRIN
     Dosage: 25 MILLIGRAM/KILOGRAM, QD (AFTER 24H OF THE LOADING DOSE ON DAYS 1?4)
     Route: 064
  7. RIBAVIRIN. [Suspect]
     Active Substance: RIBAVIRIN
     Dosage: 12.5 MILLIGRAM/KILOGRAM, QD (ON DAYS 5?7)
     Route: 064

REACTIONS (3)
  - Premature baby [Unknown]
  - Low birth weight baby [Unknown]
  - Foetal exposure during pregnancy [Unknown]

NARRATIVE: CASE EVENT DATE: 2019
